FAERS Safety Report 8807324 (Version 1)
Quarter: 2012Q4

REPORT INFORMATION
  Report Type: 
  Country: US (occurrence: US)
  Receive Date: 20120925
  Receipt Date: 20120925
  Transmission Date: 20130627
  Serious: Yes (Other)
  Sender: FDA-Public Use
  Company Number: US-ROCHE-1125792

PATIENT
  Sex: Female

DRUGS (12)
  1. XELODA [Suspect]
     Indication: BREAST CANCER METASTATIC
     Route: 065
  2. HERCEPTIN [Suspect]
     Indication: BREAST CANCER METASTATIC
     Route: 065
  3. AVASTIN [Suspect]
     Indication: BREAST CANCER METASTATIC
     Route: 065
  4. CARBOPLATIN [Concomitant]
  5. TAXOL [Concomitant]
  6. TAXOTERE [Concomitant]
  7. GEMZAR [Concomitant]
  8. IRINOTECAN [Concomitant]
  9. NAVELBINE [Concomitant]
  10. METHOTREXATE [Concomitant]
  11. ABRAXANE [Concomitant]
  12. 5-FLUOROURACIL [Concomitant]

REACTIONS (1)
  - Metastases to liver [Unknown]
